FAERS Safety Report 5002898-5 (Version None)
Quarter: 2006Q2

REPORT INFORMATION
  Report Type: 
  Country: None (occurrence: None)
  Receive Date: 20060516
  Receipt Date: 20050914
  Transmission Date: 20061013
  Serious: No
  Sender: FDA-Public Use
  Company Number: US-BRISTOL-MYERS SQUIBB COMPANY-13111034

PATIENT
  Age: 5 Year
  Sex: Male
  Weight: 19 kg

DRUGS (1)
  1. PENICILLIN V POTASSIUM [Suspect]
     Indication: STREPTOCOCCAL INFECTION
     Dosage: DOSE: 250 MG/5 ML
     Route: 048
     Dates: start: 20050828, end: 20050906

REACTIONS (1)
  - PRURITUS [None]
